FAERS Safety Report 6792698-8 (Version None)
Quarter: 2010Q2

REPORT INFORMATION
  Report Type: 
  Country: None (occurrence: None)
  Receive Date: 20100624
  Receipt Date: 20090819
  Transmission Date: 20101027
  Serious: No
  Sender: FDA-Public Use
  Company Number: US-PFIZER INC-2008068682

PATIENT
  Sex: Female
  Weight: 55.79 kg

DRUGS (2)
  1. GEODON [Suspect]
     Indication: DEPRESSION
     Dosage: 160 MG, 1X/DAY
     Route: 048
     Dates: start: 19980101
  2. NARDIL [Suspect]
     Indication: DEPRESSION
     Dosage: 45 MG, 1X/DAY
     Dates: start: 19860101

REACTIONS (6)
  - ALOPECIA [None]
  - DYSGEUSIA [None]
  - GLOSSODYNIA [None]
  - INSOMNIA [None]
  - JOINT RANGE OF MOTION DECREASED [None]
  - SLEEP DISORDER [None]
